FAERS Safety Report 20949543 (Version 2)
Quarter: 2022Q2

REPORT INFORMATION
  Report Type: Spontaneous
  Country: JP (occurrence: JP)
  Receive Date: 20220613
  Receipt Date: 20220622
  Transmission Date: 20220721
  Serious: Yes (Other)
  Sender: FDA-Public Use
  Company Number: JP-MSD-M2022-23155

PATIENT
  Age: 66 Year
  Sex: Male

DRUGS (15)
  1. MOLNUPIRAVIR [Suspect]
     Active Substance: MOLNUPIRAVIR
     Indication: COVID-19 treatment
     Dosage: 800 MILLIGRAM, BID
     Route: 048
     Dates: start: 20220601, end: 20220606
  2. OXYCODONE HYDROCHLORIDE [Concomitant]
     Active Substance: OXYCODONE HYDROCHLORIDE
     Dosage: UNK
     Route: 048
  3. LOXOPROFEN SODIUM [Concomitant]
     Active Substance: LOXOPROFEN SODIUM
     Dosage: UNK
     Route: 048
  4. TEPRENONE [Concomitant]
     Active Substance: TEPRENONE
     Dosage: UNK
     Route: 048
  5. SUCRALFATE [Concomitant]
     Active Substance: SUCRALFATE
     Dosage: UNK
     Route: 065
  6. MAGNESIUM OXIDE [Concomitant]
     Active Substance: MAGNESIUM OXIDE
     Dosage: UNK
     Route: 048
  7. CIPROFLOXACIN HYDROCHLORIDE [Concomitant]
     Active Substance: CIPROFLOXACIN HYDROCHLORIDE
     Dosage: UNK
     Route: 065
  8. ALFACALCIDOL [Concomitant]
     Active Substance: ALFACALCIDOL
     Dosage: UNK
     Route: 048
  9. DIETARY SUPPLEMENT\PROBIOTICS [Concomitant]
     Active Substance: DIETARY SUPPLEMENT\PROBIOTICS
     Dosage: UNK
     Route: 048
  10. LIMAPROST [Concomitant]
     Active Substance: LIMAPROST
     Dosage: UNK
     Route: 065
  11. AZ [SODIUM BICARBONATE;SODIUM GUALENATE HYDRATE] [Concomitant]
     Dosage: UNK
  12. GLYCERIN [Concomitant]
     Active Substance: GLYCERIN
     Dosage: UNK
     Route: 065
  13. XYLOCAINE [Concomitant]
     Active Substance: LIDOCAINE HYDROCHLORIDE
     Dosage: UNK
     Route: 065
  14. ROZEX [METRONIDAZOLE] [Concomitant]
     Dosage: UNK
  15. FLUFENAMIC ACID [Concomitant]
     Active Substance: FLUFENAMIC ACID
     Dosage: UNK

REACTIONS (6)
  - Melaena [Unknown]
  - Diarrhoea [Unknown]
  - Abdominal discomfort [Unknown]
  - Decreased appetite [Unknown]
  - Dyspepsia [Unknown]
  - Nausea [Unknown]

NARRATIVE: CASE EVENT DATE: 20220602
